FAERS Safety Report 9292606 (Version 1)
Quarter: 2013Q2

REPORT INFORMATION
  Report Type: Spontaneous
  Country: US (occurrence: US)
  Receive Date: 20130516
  Receipt Date: 20130516
  Transmission Date: 20140414
  Serious: No
  Sender: FDA-Public Use
  Company Number: US-BAYER-2013-058455

PATIENT
  Age: 52 Year
  Sex: Female
  Weight: 70.3 kg

DRUGS (2)
  1. ALEVE CAPLET [Suspect]
     Route: 048
  2. ADVIL [Concomitant]
     Indication: PYREXIA

REACTIONS (2)
  - Rash macular [Not Recovered/Not Resolved]
  - Pruritus [Not Recovered/Not Resolved]
